FAERS Safety Report 21943115 (Version 1)
Quarter: 2023Q1

REPORT INFORMATION
  Report Type: Spontaneous
  Country: US (occurrence: US)
  Receive Date: 20230202
  Receipt Date: 20230202
  Transmission Date: 20230417
  Serious: No
  Sender: FDA-Public Use
  Company Number: US-002147023-NVSC2023US018154

PATIENT
  Sex: Female

DRUGS (3)
  1. AZITHROMYCIN [Suspect]
     Active Substance: AZITHROMYCIN
     Indication: Mycobacterium avium complex infection
     Dosage: UNK, TIW
     Route: 065
     Dates: start: 20200603
  2. RIFAMPIN [Suspect]
     Active Substance: RIFAMPIN
     Indication: Mycobacterium avium complex infection
     Dosage: UNK, TIW
     Route: 065
     Dates: start: 20200603, end: 20200722
  3. ETHAMBUTOL [Suspect]
     Active Substance: ETHAMBUTOL HYDROCHLORIDE
     Indication: Mycobacterium avium complex infection
     Dosage: UNK, TIW
     Route: 065
     Dates: start: 20200603

REACTIONS (4)
  - Inflammation [Unknown]
  - Irritable bowel syndrome [Unknown]
  - Fatigue [Unknown]
  - Drug ineffective [Unknown]
